FAERS Safety Report 23633154 (Version 1)
Quarter: 2024Q1

REPORT INFORMATION
  Report Type: Spontaneous
  Country: US (occurrence: None)
  Receive Date: 20240314
  Receipt Date: 20240314
  Transmission Date: 20240410
  Serious: Yes (Disabling, Other)
  Sender: FDA-Public Use
  Company Number: None

PATIENT
  Age: 20 Year
  Sex: Male
  Weight: 71.1 kg

DRUGS (4)
  1. REXULTI [Suspect]
     Active Substance: BREXPIPRAZOLE
     Indication: Depression
     Dosage: FREQUENCY : DAILY;?
     Route: 048
     Dates: start: 20221112, end: 20230120
  2. BUPROPION HYDROCHLORIDE SR [Suspect]
     Active Substance: BUPROPION HYDROCHLORIDE
     Indication: Depression
     Dosage: FREQUENCY : TWICE A DAY;?
     Route: 048
  3. ABILIFY [Suspect]
     Active Substance: ARIPIPRAZOLE
  4. TRINTELLIX [Suspect]
     Active Substance: VORTIOXETINE HYDROBROMIDE

REACTIONS (9)
  - Erectile dysfunction [None]
  - Retrograde ejaculation [None]
  - Semen volume decreased [None]
  - Akathisia [None]
  - Joint dislocation [None]
  - Orgasm abnormal [None]
  - Orgasm abnormal [None]
  - Withdrawal syndrome [None]
  - Photophobia [None]

NARRATIVE: CASE EVENT DATE: 20221121
